FAERS Safety Report 8093010-7 (Version None)
Quarter: 2012Q1

REPORT INFORMATION
  Report Type: 
  Country: None (occurrence: None)
  Receive Date: 20120128
  Receipt Date: 20110928
  Transmission Date: 20120608
  Serious: No
  Sender: FDA-Public Use
  Company Number: US-ABBOTT-09P-163-0602742-00

PATIENT
  Sex: Female

DRUGS (2)
  1. ESTRACE [Concomitant]
  2. HUMIRA [Suspect]
     Indication: PRODUCT USED FOR UNKNOWN INDICATION

REACTIONS (10)
  - ARRHYTHMIA [None]
  - HOT FLUSH [None]
  - SKIN DISORDER [None]
  - WEIGHT INCREASED [None]
  - ANXIETY [None]
  - DRUG INEFFECTIVE [None]
  - DYSPNOEA [None]
  - DEPRESSION [None]
  - PALPITATIONS [None]
  - NIGHT SWEATS [None]
